FAERS Safety Report 22524970 (Version 1)
Quarter: 2023Q2

REPORT INFORMATION
  Report Type: Spontaneous
  Country: US (occurrence: US)
  Receive Date: 20230606
  Receipt Date: 20230606
  Transmission Date: 20230721
  Serious: Yes (Other)
  Sender: FDA-Public Use
  Company Number: US-RADIUS HEALTH, INC.-2023US002775

PATIENT
  Sex: Female

DRUGS (2)
  1. TYMLOS [Suspect]
     Active Substance: ABALOPARATIDE
     Indication: Osteoporosis
     Dosage: 80 MICROGRAM, QD
     Route: 065
  2. TYMLOS [Suspect]
     Active Substance: ABALOPARATIDE
     Dosage: 40 MICROGRAM, QD
     Route: 065

REACTIONS (6)
  - Thrombosis [Unknown]
  - Lymphoedema [Unknown]
  - Pain in jaw [Unknown]
  - Dyspepsia [Unknown]
  - Heart rate increased [Unknown]
  - Intentional product misuse [Unknown]
